FAERS Safety Report 4802470-3 (Version None)
Quarter: 2005Q4

REPORT INFORMATION
  Report Type: 
  Country: None (occurrence: None)
  Receive Date: 20051014
  Receipt Date: 20041210
  Transmission Date: 20060501
  Serious: Yes (Other)
  Sender: FDA-Public Use
  Company Number: 2004097988

PATIENT
  Age: 45 Year
  Sex: Female
  Weight: 65.7716 kg

DRUGS (4)
  1. NEURONTIN [Suspect]
     Indication: NEURALGIA
     Dosage: 900 MG (300 MG, 2 IN  1 D), ORAL
     Route: 048
     Dates: start: 20040818, end: 20041129
  2. LIBRAX [Concomitant]
  3. ALL OTHER THERAPEUTIC PRODUCTS (ALL OTHER THERAPEUTIC PRODUCTS) [Concomitant]
  4. BUPROPION HYDROCHLORIDE [Concomitant]

REACTIONS (5)
  - BLOOD URINE [None]
  - MEMORY IMPAIRMENT [None]
  - RASH [None]
  - URINARY TRACT INFECTION [None]
  - URTICARIA [None]
